FAERS Safety Report 15149292 (Version 1)
Quarter: 2018Q3

REPORT INFORMATION
  Report Type: Spontaneous
  Country: US (occurrence: US)
  Receive Date: 20180716
  Receipt Date: 20180716
  Transmission Date: 20181010
  Serious: No
  Sender: FDA-Public Use
  Company Number: US-FOUNDATIONCONSUMERHC-2018-US-010656

PATIENT
  Age: 29 Year
  Sex: Female
  Weight: 48.99 kg

DRUGS (3)
  1. WAKE?UP ON TIME TABLET [Concomitant]
     Route: 048
  2. TAKE ACTION [Suspect]
     Active Substance: LEVONORGESTREL
     Indication: POST COITAL CONTRACEPTION
     Dosage: 1.5MG
     Route: 048
     Dates: start: 20180624, end: 20180624
  3. MULTIVITAMIN UNSPECIFIED [Concomitant]
     Route: 048

REACTIONS (1)
  - Dysmenorrhoea [Not Recovered/Not Resolved]

NARRATIVE: CASE EVENT DATE: 20180624
